FAERS Safety Report 6843950-9 (Version None)
Quarter: 2010Q3

REPORT INFORMATION
  Report Type: 
  Country: None (occurrence: None)
  Receive Date: 20100715
  Receipt Date: 20100705
  Transmission Date: 20110219
  Serious: Yes (Hospitalization, Other)
  Sender: FDA-Public Use
  Company Number: JP-PFIZER INC-2010076637

PATIENT
  Age: 57 Year
  Sex: Male
  Weight: 64 kg

DRUGS (19)
  1. CHAMPIX [Suspect]
     Indication: SMOKING CESSATION THERAPY
     Dosage: 0.5 MG, 1X/DAY
     Route: 048
     Dates: start: 20100416, end: 20100418
  2. CHAMPIX [Suspect]
     Dosage: 0.5 MG, 2X/DAY
     Route: 048
     Dates: start: 20100419, end: 20100422
  3. CHAMPIX [Suspect]
     Dosage: 1 MG, 2X/DAY
     Route: 048
     Dates: start: 20100423, end: 20100609
  4. HALOMONTH [Suspect]
     Indication: SCHIZOPHRENIA
     Dosage: 200 MG, MONTHLY
     Route: 030
     Dates: end: 20091114
  5. HALOMONTH [Suspect]
     Dosage: 100 MG, MONTHLY
     Route: 030
     Dates: start: 20091212, end: 20091212
  6. RISPERDAL [Concomitant]
     Indication: SCHIZOPHRENIA
     Dosage: 50 MG, 2X/MONTHS
     Route: 030
     Dates: start: 20100213, end: 20100617
  7. ROHYPNOL [Concomitant]
     Indication: INSOMNIA
     Dosage: 2 MG, 1X/DAY
     Route: 048
  8. AMARYL [Concomitant]
     Indication: DIABETES MELLITUS
     Dosage: 1 MG, 1X/DAY
     Route: 048
  9. METFORMIN HCL [Concomitant]
     Indication: DIABETES MELLITUS
     Dosage: 500 MG, 2X/DAY
     Route: 048
  10. LASIX [Concomitant]
     Indication: CONGESTIVE CARDIOMYOPATHY
     Dosage: 20 MG, 1X/DAY
     Route: 048
  11. RENIVACE [Concomitant]
     Indication: CONGESTIVE CARDIOMYOPATHY
     Dosage: 2.5 MG, 1X/DAY
     Route: 048
  12. DIGOXIN [Concomitant]
     Indication: CONGESTIVE CARDIOMYOPATHY
     Dosage: 125 MG, 1X/DAY
     Route: 048
  13. ARTIST [Concomitant]
     Indication: CONGESTIVE CARDIOMYOPATHY
     Dosage: 5 MG, 1X/DAY
     Route: 048
  14. HALCION [Concomitant]
     Indication: INSOMNIA
     Dosage: 0.25 MG, 1X/DAY
     Route: 048
     Dates: start: 20100615
  15. HIRNAMIN [Concomitant]
     Indication: SCHIZOPHRENIA
     Dosage: 25 MG, 1X/DAY
     Route: 048
     Dates: start: 20100615, end: 20100620
  16. HIRNAMIN [Concomitant]
     Dosage: 12.5 MG, 1X/DAY
     Route: 048
     Dates: start: 20100621, end: 20100627
  17. AKINETON [Concomitant]
     Dosage: 1 MG, 3X/DAY
     Route: 048
     Dates: start: 20100615
  18. LORAZEPAM [Concomitant]
     Indication: ANXIETY
     Dosage: 1 MG, 3X/DAY
     Route: 048
     Dates: start: 20100615, end: 20100621
  19. LORAZEPAM [Concomitant]
     Indication: TENSION
     Dosage: 0.5 MG, 3X/DAY
     Route: 048
     Dates: start: 20100621

REACTIONS (3)
  - GAIT DISTURBANCE [None]
  - INSOMNIA [None]
  - SCHIZOPHRENIA [None]
